FAERS Safety Report 4287996-6 (Version None)
Quarter: 2004Q1

REPORT INFORMATION
  Report Type: 
  Country: None (occurrence: None)
  Receive Date: 20040209
  Receipt Date: 20031111
  Transmission Date: 20041129
  Serious: No
  Sender: FDA-Public Use
  Company Number: US-GLAXOSMITHKLINE-A0439418A

PATIENT
  Age: 47 Year
  Sex: Female
  Weight: 82.3 kg

DRUGS (3)
  1. PAXIL [Suspect]
     Indication: DEPRESSION
     Dosage: 1TAB THREE TIMES PER DAY
     Route: 048
  2. BLOOD PRESSURE MEDICATION [Concomitant]
  3. THYROID MEDICATION [Concomitant]

REACTIONS (1)
  - RASH PRURITIC [None]
